FAERS Safety Report 10554573 (Version 2)
Quarter: 2015Q1

REPORT INFORMATION
  Report Type: Spontaneous
  Country: AR (occurrence: AR)
  Receive Date: 20141030
  Receipt Date: 20150302
  Transmission Date: 20150720
  Serious: Yes (Death, Hospitalization)
  Sender: FDA-Public Use
  Company Number: AR-PFIZER INC-2014299629

PATIENT
  Sex: Male
  Weight: 65 kg

DRUGS (3)
  1. METHOTREXATE [Concomitant]
     Active Substance: METHOTREXATE
     Dosage: 7.5
  2. FOLIC ACID. [Concomitant]
     Active Substance: FOLIC ACID
  3. XELJANZ [Suspect]
     Active Substance: TOFACITINIB CITRATE
     Indication: RHEUMATOID ARTHRITIS
     Dosage: 10 MG, DAILY
     Dates: start: 201407, end: 201408

REACTIONS (5)
  - Pyrexia [Unknown]
  - Productive cough [Unknown]
  - Multi-organ failure [Fatal]
  - Cardio-respiratory arrest [Unknown]
  - Pneumonia [Unknown]

NARRATIVE: CASE EVENT DATE: 2014
